FAERS Safety Report 8912268 (Version 1)
Quarter: 2012Q4

REPORT INFORMATION
  Report Type: 
  Country: MY (occurrence: MY)
  Receive Date: 20121115
  Receipt Date: 20121115
  Transmission Date: 20130627
  Serious: Yes (Death, Other)
  Sender: FDA-Public Use
  Company Number: MY-PFIZER INC-2012282812

PATIENT
  Age: 79 Year
  Sex: Male

DRUGS (5)
  1. DEXAMETHASONE SODIUM PHOSPHATE [Suspect]
     Indication: NECK MASS
     Dosage: 8 mg, every 8 hours
     Route: 042
  2. DOXORUBICIN HCL [Suspect]
     Indication: ANGIOIMMUNOBLASTIC T-CELL LYMPHOMA
     Dosage: 50 mg/m2, UNK
     Route: 042
  3. CYCLOPHOSPHAMIDE [Suspect]
     Indication: ANGIOIMMUNOBLASTIC T-CELL LYMPHOMA
     Dosage: 750 mg/m2, UNK
     Route: 042
  4. PREDNISONE [Suspect]
     Indication: ANGIOIMMUNOBLASTIC T-CELL LYMPHOMA
     Dosage: 100 mg, for 5 days for every 21days
     Route: 048
  5. ONCOVIN [Suspect]
     Indication: ANGIOIMMUNOBLASTIC T-CELL LYMPHOMA
     Dosage: 1.4 mg, for 1 day
     Route: 042

REACTIONS (4)
  - Multi-organ failure [Fatal]
  - Septic shock [Fatal]
  - Strongyloidiasis [Unknown]
  - Bacteraemia [Unknown]
